FAERS Safety Report 8410071-3 (Version None)
Quarter: 2012Q2

REPORT INFORMATION
  Report Type: 
  Country: None (occurrence: None)
  Receive Date: 20120529
  Receipt Date: 20120509
  Transmission Date: 20120825
  Serious: Yes (Death, Congenital Anomaly)
  Sender: FDA-Public Use
  Company Number: ADR-5035-053

PATIENT

DRUGS (5)
  1. TENOFOVIR DISOPROXIL FUMARATE [Suspect]
     Indication: ACQUIRED IMMUNODEFICIENCY SYNDROME
     Dosage: 1 COURSE, ORAL
     Route: 048
     Dates: start: 20111001
  2. LAMIVUDINE + ZIDOVUDINE (COMBIVIR, ZDV+3TC) [Concomitant]
  3. RALTEGRAVIR (ISENTRESS, RAL) [Concomitant]
  4. LOPINAVIR+RITONAVIR (KALETRA, ALUVIA, LPV/R) [Concomitant]
  5. ATAZANAVIR SULFATE (REYATAZ, ATV) [Concomitant]

REACTIONS (3)
  - MATERNAL DRUGS AFFECTING FOETUS [None]
  - TRISOMY 21 [None]
  - ABORTION INDUCED [None]
